FAERS Safety Report 9587388 (Version 1)
Quarter: 2013Q4

REPORT INFORMATION
  Report Type: Spontaneous
  Country: NL (occurrence: NL)
  Receive Date: 20131003
  Receipt Date: 20131003
  Transmission Date: 20140711
  Serious: Yes (Hospitalization, Other)
  Sender: FDA-Public Use
  Company Number: NL-ROXANE LABORATORIES, INC.-2013-RO-01597RO

PATIENT
  Age: 60 Year
  Sex: Male

DRUGS (7)
  1. LITHIUM CARBONATE [Suspect]
     Indication: BIPOLAR I DISORDER
  2. PRAMIPEXOLE [Suspect]
     Indication: RESTLESS LEGS SYNDROME
     Dosage: 0.125 MG
  3. OLANZAPINE [Suspect]
     Indication: HYPOMANIA
  4. OLANZAPINE [Suspect]
     Indication: PROPHYLAXIS
  5. MIRTAZAPINE [Suspect]
     Indication: BIPOLAR I DISORDER
     Dosage: 30 MG
  6. MIRTAZAPINE [Suspect]
     Dosage: 15 MG
  7. OXAZEPAM [Suspect]
     Indication: HYPOMANIA

REACTIONS (6)
  - Creatinine renal clearance increased [Unknown]
  - Glomerular filtration rate decreased [Unknown]
  - Restless legs syndrome [Unknown]
  - Bipolar I disorder [Unknown]
  - Hypomania [Unknown]
  - Mania [Unknown]
